FAERS Safety Report 8238863-4 (Version None)
Quarter: 2012Q1

REPORT INFORMATION
  Report Type: 
  Country: None (occurrence: None)
  Receive Date: 20120327
  Receipt Date: 20120323
  Transmission Date: 20120608
  Serious: Yes (Death)
  Sender: FDA-Public Use
  Company Number: US-ASTELLAS-2012US003076

PATIENT
  Sex: Female

DRUGS (2)
  1. PROGRAF [Suspect]
     Indication: NEPHRITIS
     Dosage: 2 MG, BID
     Route: 048
  2. PROGRAF [Suspect]
     Indication: NEPHROPATHY

REACTIONS (2)
  - DEATH [None]
  - OFF LABEL USE [None]
